FAERS Safety Report 7516751-6 (Version None)
Quarter: 2011Q2

REPORT INFORMATION
  Report Type: 
  Country: None (occurrence: None)
  Receive Date: 20110601
  Receipt Date: 20110531
  Transmission Date: 20111010
  Serious: Yes (Hospitalization, Other)
  Sender: FDA-Public Use
  Company Number: IT-BRISTOL-MYERS SQUIBB COMPANY-15188790

PATIENT
  Age: 32 Year
  Sex: Female

DRUGS (3)
  1. CLONAZEPAM [Suspect]
     Indication: DEPRESSION
     Dosage: 2MG ORAL TABS THERAPEUTIC DOSAGE:2 TABS/DAY
     Route: 048
     Dates: start: 20100603
  2. PAROXETINE HCL [Suspect]
     Indication: DEPRESSION
     Route: 048
     Dates: start: 20100603
  3. ABILIFY [Suspect]
     Indication: DEPRESSION
     Dosage: 15MG ORAL TABS
     Route: 048
     Dates: start: 20100603

REACTIONS (2)
  - OVERDOSE [None]
  - DRUG ABUSE [None]
